FAERS Safety Report 19063134 (Version 1)
Quarter: 2021Q1

REPORT INFORMATION
  Report Type: Report from Study
  Country: FR (occurrence: FR)
  Receive Date: 20210326
  Receipt Date: 20210326
  Transmission Date: 20210420
  Serious: Yes (Other)
  Sender: FDA-Public Use
  Company Number: FR-GLAXOSMITHKLINE-FR2020EME116378

PATIENT
  Sex: Female
  Weight: 65 kg

DRUGS (6)
  1. DARATUMUMAB [Concomitant]
     Active Substance: DARATUMUMAB
     Indication: MONOCLONAL ANTIBODY IMMUNOCONJUGATE THERAPY
  2. CARFILZOMIB [Concomitant]
     Active Substance: CARFILZOMIB
  3. LENALIDOMIDE [Concomitant]
     Active Substance: LENALIDOMIDE
     Indication: IMMUNOMODULATORY THERAPY
  4. BELANTAMAB MAFODOTIN. [Suspect]
     Active Substance: BELANTAMAB MAFODOTIN
     Indication: PLASMA CELL MYELOMA
     Dosage: 2.5 MG/KG, CYC
     Route: 042
     Dates: start: 20200629
  5. POMALIDOMIDE [Concomitant]
     Active Substance: POMALIDOMIDE
     Indication: IMMUNOMODULATORY THERAPY
  6. BORTEZOMIB. [Concomitant]
     Active Substance: BORTEZOMIB

REACTIONS (7)
  - Hypercalcaemia [Unknown]
  - Plasma cell myeloma [Unknown]
  - Nausea [Unknown]
  - Vomiting [Unknown]
  - Confusional state [Unknown]
  - Renal failure [Unknown]
  - Nervous system disorder [Unknown]
